FAERS Safety Report 24317738 (Version 2)
Quarter: 2024Q4

REPORT INFORMATION
  Report Type: Spontaneous
  Country: US (occurrence: US)
  Receive Date: 20240913
  Receipt Date: 20241021
  Transmission Date: 20250115
  Serious: No
  Sender: PFIZER
  Company Number: US-PFIZER INC-202400255912

PATIENT
  Age: 49 Year
  Sex: Female
  Weight: 58.05 kg

DRUGS (9)
  1. PAXLOVID [Suspect]
     Active Substance: NIRMATRELVIR\RITONAVIR
     Indication: COVID-19 treatment
     Dosage: NIRMATRELVIR 300 MG / RITONAVIR 100 MG, 2X/DAY
     Route: 048
     Dates: start: 20240830, end: 20240903
  2. HYDROXYZINE [Concomitant]
     Active Substance: HYDROXYZINE HYDROCHLORIDE
     Indication: Sleep disorder
     Dosage: 100 MG, DAILY
  3. JUNEL [Concomitant]
     Active Substance: ETHINYL ESTRADIOL\NORETHINDRONE ACETATE
     Dosage: UNK, DAILY (1.5 MG/30 MG)
  4. LEVALBUTEROL [Concomitant]
     Active Substance: LEVALBUTEROL
     Indication: Asthma
     Dosage: UNK, DAILY (1-2 PUFFS)
  5. SINGULAIR [Concomitant]
     Active Substance: MONTELUKAST SODIUM
     Indication: Hypersensitivity
     Dosage: 10 MG, DAILY
  6. SINGULAIR [Concomitant]
     Active Substance: MONTELUKAST SODIUM
     Indication: Asthma
  7. CHOLECALCIFEROL [Concomitant]
     Active Substance: CHOLECALCIFEROL
     Dosage: 1000 IU, DAILY
  8. LACTOBACILLUS ACID [Concomitant]
     Dosage: 1 DF, DAILY
  9. FISH OIL [Concomitant]
     Active Substance: FISH OIL
     Dosage: 1 DF, DAILY

REACTIONS (2)
  - COVID-19 [Recovered/Resolved]
  - Disease recurrence [Recovered/Resolved]

NARRATIVE: CASE EVENT DATE: 20240908
